FAERS Safety Report 7455259-3 (Version None)
Quarter: 2011Q2

REPORT INFORMATION
  Report Type: 
  Country: None (occurrence: None)
  Receive Date: 20110503
  Receipt Date: 20110419
  Transmission Date: 20111010
  Serious: No
  Sender: FDA-Public Use
  Company Number: US-ELI_LILLY_AND_COMPANY-US201010002694

PATIENT
  Sex: Female

DRUGS (15)
  1. FENTANYL [Concomitant]
     Indication: PAIN
     Dates: start: 20101001
  2. FORTEO [Suspect]
     Dosage: 20 UG, DAILY (1/D)
  3. VITAMIN D [Concomitant]
     Dosage: 1000 IU, QD
     Route: 065
  4. FORTEO [Suspect]
     Dosage: 20 UG, DAILY (1/D)
     Route: 065
  5. FORTEO [Suspect]
     Indication: OSTEOPOROSIS
     Dosage: 20 UG, DAILY (1/D)
     Dates: start: 20100921
  6. SPIRONOLACTONE [Concomitant]
     Dosage: 25 MG, QD
     Route: 065
  7. OXYCONTIN [Concomitant]
     Indication: PAIN
     Dates: start: 20101001
  8. FORTEO [Suspect]
     Dosage: 20 UG, DAILY (1/D)
  9. ANALGESICS [Concomitant]
  10. CALCIUM MAGNESIUM ZINC [Concomitant]
     Route: 065
  11. PERCOCET [Concomitant]
     Dosage: 2 DF, EVERY 4 HRS
     Route: 065
  12. PERCOCET [Concomitant]
     Indication: PAIN
     Dosage: 2 DF, EVERY 4 HRS
     Dates: start: 20101001
  13. ALTACE [Concomitant]
     Dosage: 5 MG, QD
     Route: 065
  14. ASPIRIN [Concomitant]
     Dosage: 81 MG, QD
     Route: 065
  15. LOVENOX [Concomitant]
     Dosage: 40 MG, QD
     Route: 058

REACTIONS (11)
  - MOVEMENT DISORDER [None]
  - PAIN IN EXTREMITY [None]
  - MONOPARESIS [None]
  - MUSCLE SPASMS [None]
  - ASTHENIA [None]
  - ANXIETY [None]
  - LIMB DISCOMFORT [None]
  - ARTHRALGIA [None]
  - NIGHTMARE [None]
  - ARTHRITIS [None]
  - FALL [None]
